FAERS Safety Report 13397550 (Version 3)
Quarter: 2017Q4

REPORT INFORMATION
  Report Type: Spontaneous
  Country: JP (occurrence: JP)
  Receive Date: 20170403
  Receipt Date: 20171023
  Transmission Date: 20180320
  Serious: Yes (Disabling, Other)
  Sender: FDA-Public Use
  Company Number: JP-TEVA-754149ROM

PATIENT
  Age: 88 Year
  Sex: Female

DRUGS (2)
  1. RISERONATE SODIUM- BP [Suspect]
     Active Substance: RISEDRONATE SODIUM
     Indication: OSTEOPOROSIS
     Route: 048
     Dates: start: 201612
  2. ADONA [Concomitant]
     Active Substance: CARBAZOCHROME SODIUM SULFONATE

REACTIONS (4)
  - Inappropriate schedule of drug administration [Unknown]
  - Glaucoma [Unknown]
  - Retinal haemorrhage [Unknown]
  - Blindness [Unknown]

NARRATIVE: CASE EVENT DATE: 201612
